FAERS Safety Report 7988797-5 (Version None)
Quarter: 2011Q4

REPORT INFORMATION
  Report Type: 
  Country: None (occurrence: None)
  Receive Date: 20111219
  Receipt Date: 20111207
  Transmission Date: 20120403
  Serious: No
  Sender: FDA-Public Use
  Company Number: US-BIOGENIDEC-2011BI046792

PATIENT
  Sex: Male

DRUGS (1)
  1. AVONEX [Suspect]
     Indication: MULTIPLE SCLEROSIS
     Route: 030
     Dates: start: 20100805, end: 20111001

REACTIONS (4)
  - FEAR [None]
  - MUSCULAR WEAKNESS [None]
  - TREMOR [None]
  - MULTIPLE SCLEROSIS [None]
